FAERS Safety Report 4474066-7 (Version None)
Quarter: 2004Q4

REPORT INFORMATION
  Report Type: 
  Country: None (occurrence: None)
  Receive Date: 20041008
  Receipt Date: 20040924
  Transmission Date: 20050328
  Serious: Yes (Hospitalization)
  Sender: FDA-Public Use
  Company Number: A0527229A

PATIENT
  Age: 60 Year
  Sex: Female
  Weight: 61.281 kg

DRUGS (4)
  1. NICORETTE [Suspect]
     Indication: EX-SMOKER
     Dosage: 2 MG/TRANSBUCCAL
     Route: 002
  2. NICODERM CQ [Suspect]
     Indication: EX-SMOKER
     Dosage: TRANSDERMAL
     Route: 062
  3. PREMPRO [Suspect]
     Indication: POSTMENOPAUSE
     Dosage: ORAL
     Route: 048
     Dates: end: 20040301
  4. CARDIOVASCULAR MEDICATION (CARDIOVASCULAR MEDICATION) [Suspect]
     Indication: HEART RATE IRREGULAR
     Dosage: ORAL
     Route: 048
     Dates: end: 20040301

REACTIONS (5)
  - ASTHMA [None]
  - COLLAPSE OF LUNG [None]
  - DIZZINESS [None]
  - EMPHYSEMA [None]
  - INTESTINAL OBSTRUCTION [None]
